FAERS Safety Report 8005218-7 (Version None)
Quarter: 2011Q4

REPORT INFORMATION
  Report Type: 
  Country: None (occurrence: None)
  Receive Date: 20111223
  Receipt Date: 20111220
  Transmission Date: 20120403
  Serious: Yes (Death)
  Sender: FDA-Public Use
  Company Number: PHEH2011US012106

PATIENT
  Sex: Male

DRUGS (8)
  1. MAXIDEX OPHTHALMIC [Concomitant]
  2. POTASSIUM TABLETS EFFERVESCENT [Concomitant]
     Dosage: 25 MEQ, UNK
  3. TARCEVA [Suspect]
     Dosage: 150 MG, UNK
     Route: 048
  4. NEXAVAR [Concomitant]
     Dosage: 200 MG, UNK
     Route: 048
  5. COUMADIN [Concomitant]
     Dosage: 1 MG, UNK
     Route: 048
  6. XELODA [Suspect]
     Dosage: 500 MG, UNK
     Route: 048
  7. NORVASC [Concomitant]
     Dosage: 2.5 MG, UNK
     Route: 048
  8. GLEEVEC [Suspect]
     Dosage: 1 DF, DAILY
     Route: 048

REACTIONS (1)
  - DISEASE PROGRESSION [None]
